FAERS Safety Report 6516522-3 (Version None)
Quarter: 2009Q4

REPORT INFORMATION
  Report Type: 
  Country: None (occurrence: None)
  Receive Date: 20091223
  Receipt Date: 20091215
  Transmission Date: 20100525
  Serious: Yes (Other)
  Sender: FDA-Public Use
  Company Number: TW-JNJFOC-20091205734

PATIENT
  Sex: Male

DRUGS (3)
  1. FENTANYL CITRATE [Suspect]
     Indication: ANALGESIC THERAPY
     Route: 062
  2. MORPHINE [Suspect]
     Indication: ANALGESIC THERAPY
  3. DIPHENHYDRAMINE HCL [Suspect]
     Indication: ANALGESIC THERAPY

REACTIONS (2)
  - AKATHISIA [None]
  - DELIRIUM [None]
